FAERS Safety Report 20537196 (Version 1)
Quarter: 2022Q1

REPORT INFORMATION
  Report Type: Spontaneous
  Country: DK (occurrence: DK)
  Receive Date: 20220302
  Receipt Date: 20220302
  Transmission Date: 20220423
  Serious: Yes (Other)
  Sender: FDA-Public Use
  Company Number: DK-JNJFOC-20220247531

PATIENT
  Age: 25 Year
  Sex: Female

DRUGS (3)
  1. DARZALEX [Suspect]
     Active Substance: DARATUMUMAB
     Indication: Acute lymphocytic leukaemia
     Dosage: D1 WEEKLY FOR 8 WEEKS AND THEREAFTER EVERY 2 WEEKS TILL RELAPSE (TOTAL 17 INFUSIONS)
     Route: 042
  2. NELARABINE [Suspect]
     Active Substance: NELARABINE
     Indication: Acute lymphocytic leukaemia
     Dosage: D1, 3, 5 EVERY 3 WEEKS, 2 COURSES
     Route: 065
  3. DEXAMETHASONE [Suspect]
     Active Substance: DEXAMETHASONE
     Indication: Acute lymphocytic leukaemia
     Dosage: D14 EVERY TWO WEEKS, 2 COURSES
     Route: 065

REACTIONS (9)
  - Graft versus host disease [Recovered/Resolved]
  - Myelosuppression [Recovered/Resolved]
  - Sepsis [Recovered/Resolved]
  - Thrombocytopenia [Unknown]
  - Fatigue [Unknown]
  - Myalgia [Unknown]
  - Peripheral sensory neuropathy [Unknown]
  - Product use in unapproved indication [Unknown]
  - Off label use [Unknown]
